FAERS Safety Report 12701062 (Version 1)
Quarter: 2016Q3

REPORT INFORMATION
  Report Type: Spontaneous
  Country: US (occurrence: None)
  Receive Date: 20160830
  Receipt Date: 20160830
  Transmission Date: 20161109
  Serious: Yes (Hospitalization)
  Sender: FDA-Public Use
  Company Number: None

PATIENT
  Age: 62 Year
  Sex: Male
  Weight: 113 kg

DRUGS (1)
  1. TEMOZOLOMIDE. [Suspect]
     Active Substance: TEMOZOLOMIDE
     Dates: end: 20160805

REACTIONS (6)
  - Gait disturbance [None]
  - Asthenia [None]
  - Speech disorder [None]
  - Fatigue [None]
  - Muscle spasms [None]
  - Aphasia [None]

NARRATIVE: CASE EVENT DATE: 20160824
